FAERS Safety Report 19602421 (Version 4)
Quarter: 2021Q3

REPORT INFORMATION
  Report Type: Report from Study
  Country: None (occurrence: CA)
  Receive Date: 20210724
  Receipt Date: 20210825
  Transmission Date: 20211014
  Serious: Yes (Hospitalization, Other)
  Sender: FDA-Public Use
  Company Number: CA-ABBVIE-21K-028-4003084-00

PATIENT
  Sex: Male

DRUGS (1)
  1. LUPRON DEPOT [Suspect]
     Active Substance: LEUPROLIDE ACETATE
     Indication: PROSTATE CANCER
     Route: 030
     Dates: start: 20191115, end: 20210430

REACTIONS (10)
  - Appendicitis [Unknown]
  - Feeding disorder [Not Recovered/Not Resolved]
  - Oedema peripheral [Recovered/Resolved]
  - Blood potassium decreased [Unknown]
  - Lip and/or oral cavity cancer [Unknown]
  - Renal impairment [Not Recovered/Not Resolved]
  - Weight decreased [Not Recovered/Not Resolved]
  - Gait inability [Not Recovered/Not Resolved]
  - Fluid intake reduced [Not Recovered/Not Resolved]
  - Colectomy [Not Recovered/Not Resolved]

NARRATIVE: CASE EVENT DATE: 2021
